FAERS Safety Report 9619644 (Version 1)
Quarter: 2013Q4

REPORT INFORMATION
  Report Type: Spontaneous
  Country: US (occurrence: US)
  Receive Date: 20131014
  Receipt Date: 20131014
  Transmission Date: 20140711
  Serious: Yes (Death, Other)
  Sender: FDA-Public Use
  Company Number: PHHY2013US114696

PATIENT
  Age: 79 Year
  Sex: Male

DRUGS (1)
  1. MYCOPHENOLATE [Suspect]
     Indication: BILIARY CIRRHOSIS PRIMARY
     Dosage: UNK UKN, UNK

REACTIONS (7)
  - Multi-organ failure [Fatal]
  - Renal failure [Fatal]
  - Neoplasm [Unknown]
  - Metastatic squamous cell carcinoma [Unknown]
  - Mycobacterium avium complex infection [Unknown]
  - Skin mass [Unknown]
  - Renal cell carcinoma [Unknown]
